FAERS Safety Report 12792414 (Version 1)
Quarter: 2016Q3

REPORT INFORMATION
  Report Type: Spontaneous
  Country: US (occurrence: US)
  Receive Date: 20160927
  Receipt Date: 20160927
  Transmission Date: 20161109
  Serious: No
  Sender: FDA-Public Use
  Company Number: None

PATIENT
  Age: 64 Year
  Sex: Female
  Weight: 67.59 kg

DRUGS (5)
  1. COCONUT POWDER [Concomitant]
  2. TURMERIC [Concomitant]
     Active Substance: TURMERIC
  3. LISINOPRIL. [Concomitant]
     Active Substance: LISINOPRIL
  4. FIBER [Concomitant]
     Active Substance: PSYLLIUM HUSK
  5. LEVOFLOXACIN. [Suspect]
     Active Substance: LEVOFLOXACIN
     Indication: PNEUMONIA
     Dosage: 1 PILL
     Route: 048
     Dates: start: 20160418, end: 20160419

REACTIONS (4)
  - Musculoskeletal pain [None]
  - Arthralgia [None]
  - Condition aggravated [None]
  - Arthropathy [None]

NARRATIVE: CASE EVENT DATE: 20160418
